FAERS Safety Report 8829306 (Version 1)
Quarter: 2012Q4

REPORT INFORMATION
  Report Type: 
  Country: US (occurrence: US)
  Receive Date: 20121008
  Receipt Date: 20121008
  Transmission Date: 20130627
  Serious: Yes (Other)
  Sender: FDA-Public Use
  Company Number: US-ROCHE-1135786

PATIENT
  Sex: Male

DRUGS (5)
  1. RITUXAN [Suspect]
     Indication: CHRONIC LYMPHOCYTIC LEUKAEMIA
     Route: 065
     Dates: start: 19980715
  2. RITUXAN [Suspect]
     Indication: LYMPHOMA
     Route: 065
     Dates: start: 19980915
  3. RITUXAN [Suspect]
     Route: 065
     Dates: start: 19981223
  4. ZOFRAN [Concomitant]
     Route: 048
  5. BENADRYL [Concomitant]
     Route: 065

REACTIONS (2)
  - Chronic lymphocytic leukaemia recurrent [Unknown]
  - Nausea [Unknown]
